FAERS Safety Report 7764160-7 (Version None)
Quarter: 2011Q3

REPORT INFORMATION
  Report Type: 
  Country: None (occurrence: None)
  Receive Date: 20110916
  Receipt Date: 20110907
  Transmission Date: 20111222
  Serious: Yes (Hospitalization)
  Sender: FDA-Public Use
  Company Number: 1000023083

PATIENT
  Age: 67 Year
  Sex: Male

DRUGS (6)
  1. OMEPRAZOLE [Suspect]
     Indication: GASTRITIS PROPHYLAXIS
     Dosage: 20 MG (20 MG, 1 IN 24 HR);
     Dates: end: 20100101
  2. ASPIRIN [Concomitant]
  3. OMEPRAZOLE [Suspect]
     Indication: OESOPHAGITIS
     Dosage: 40 MG (40 MG, 1 IN 1 D)';
     Dates: start: 20100101
  4. SALMETEROL/FLUTICASONE PROPIONATE [Concomitant]
  5. LOSARTAN POTASSIUM [Concomitant]
  6. DILTIAZEM [Suspect]

REACTIONS (8)
  - HYPOCALCAEMIA [None]
  - OESOPHAGITIS [None]
  - MALABSORPTION [None]
  - TETANY [None]
  - ASTHENIA [None]
  - HYPOMAGNESAEMIA [None]
  - PARAESTHESIA [None]
  - TROUSSEAU'S SYNDROME [None]
